FAERS Safety Report 16001851 (Version 2)
Quarter: 2019Q1

REPORT INFORMATION
  Report Type: Spontaneous
  Country: US (occurrence: US)
  Receive Date: 20190225
  Receipt Date: 20190305
  Transmission Date: 20190418
  Serious: Yes (Other)
  Sender: FDA-Public Use
  Company Number: US-PFIZER INC-2019079379

PATIENT
  Age: 56 Year
  Sex: Female

DRUGS (3)
  1. CYCLOSPORINE. [Concomitant]
     Active Substance: CYCLOSPORINE
     Indication: RHEUMATIC DISORDER
     Dosage: 75 MG, DAILY (1MG/KG)
  2. BELIMUMAB [Concomitant]
     Active Substance: BELIMUMAB
     Indication: RHEUMATIC DISORDER
     Dosage: 1.5 ML, MONTHLY
  3. ZOLEDRONIC ACID [Suspect]
     Active Substance: ZOLEDRONIC ACID
     Indication: OSTEOPOROSIS
     Dosage: UNK (INFUSION)
     Route: 042

REACTIONS (1)
  - Idiopathic orbital inflammation [Recovered/Resolved]
